FAERS Safety Report 10084497 (Version 1)
Quarter: 2014Q2

REPORT INFORMATION
  Report Type: Spontaneous
  Country: US (occurrence: US)
  Receive Date: 20140417
  Receipt Date: 20140417
  Transmission Date: 20141212
  Serious: No
  Sender: FDA-Public Use
  Company Number: US-009507513-1404USA001620

PATIENT
  Sex: 0

DRUGS (1)
  1. MIRALAX [Suspect]
     Indication: CONSTIPATION
     Dosage: 34 G, ONCE
     Route: 048
     Dates: start: 20140319

REACTIONS (3)
  - Overdose [Unknown]
  - Drug prescribing error [Unknown]
  - Drug ineffective [Unknown]
